FAERS Safety Report 24857623 (Version 3)
Quarter: 2025Q2

REPORT INFORMATION
  Report Type: Report from Study
  Country: JP (occurrence: JP)
  Receive Date: 20250117
  Receipt Date: 20250404
  Transmission Date: 20250716
  Serious: Yes (Other)
  Sender: BAYER
  Company Number: JP-BAYER-2024A130219

PATIENT
  Age: 1 Year
  Sex: Female
  Weight: 8.2 kg

DRUGS (5)
  1. LAROTRECTINIB [Suspect]
     Active Substance: LAROTRECTINIB
     Indication: Congenital fibrosarcoma
     Dosage: 40 MG, BID
     Route: 048
     Dates: start: 20240906, end: 20240909
  2. LAROTRECTINIB [Suspect]
     Active Substance: LAROTRECTINIB
     Indication: Congenital fibrosarcoma
     Dosage: 20 MG, BID
     Route: 048
     Dates: start: 20240912
  3. LAROTRECTINIB [Suspect]
     Active Substance: LAROTRECTINIB
     Indication: Congenital fibrosarcoma
     Dosage: 30 MG, BID
     Dates: start: 20240917
  4. LAROTRECTINIB [Suspect]
     Active Substance: LAROTRECTINIB
     Indication: Congenital fibrosarcoma
     Dosage: 40 MG, BID
     Route: 048
     Dates: start: 20240925
  5. LAROTRECTINIB [Suspect]
     Active Substance: LAROTRECTINIB
     Indication: Congenital fibrosarcoma
     Dosage: 50 MG, BID
     Route: 048
     Dates: start: 20241227, end: 20250115

REACTIONS (6)
  - Fibrosarcoma [Unknown]
  - Drug resistance [None]
  - Hepatic function abnormal [Recovered/Resolved]
  - Blood alkaline phosphatase increased [Unknown]
  - White blood cell count increased [Unknown]
  - C-reactive protein increased [Unknown]

NARRATIVE: CASE EVENT DATE: 20240909
